FAERS Safety Report 19090054 (Version 2)
Quarter: 2021Q2

REPORT INFORMATION
  Report Type: Spontaneous
  Country: US (occurrence: US)
  Receive Date: 20210404
  Receipt Date: 20210507
  Transmission Date: 20210717
  Serious: No
  Sender: FDA-Public Use
  Company Number: US-SA-2021SA110709

PATIENT
  Sex: Female

DRUGS (1)
  1. DUPIXENT [Suspect]
     Active Substance: DUPILUMAB
     Indication: ASTHMA
     Dosage: 200 MG, QOW
     Route: 058
     Dates: start: 201610

REACTIONS (5)
  - Fatigue [Unknown]
  - Eye pain [Unknown]
  - Ocular discomfort [Unknown]
  - Eye swelling [Unknown]
  - Ophthalmic migraine [Unknown]
